FAERS Safety Report 10878131 (Version 1)
Quarter: 2015Q1

REPORT INFORMATION
  Report Type: Spontaneous
  Country: US (occurrence: US)
  Receive Date: 20150302
  Receipt Date: 20150302
  Transmission Date: 20150721
  Serious: No
  Sender: FDA-Public Use
  Company Number: US-ABBVIE-14P-163-1298706-00

PATIENT
  Sex: Male
  Weight: 99.88 kg

DRUGS (10)
  1. ANDROGEL [Suspect]
     Active Substance: TESTOSTERONE
     Indication: BLOOD TESTOSTERONE DECREASED
     Dosage: 1 PACKET
     Route: 061
     Dates: start: 2012
  2. OMEPRAZOLE. [Concomitant]
     Active Substance: OMEPRAZOLE
     Indication: GASTROOESOPHAGEAL REFLUX DISEASE
  3. ENALAPRIL [Concomitant]
     Active Substance: ENALAPRIL
     Indication: HYPERTENSION
  4. PROCHLORPERAZ MALEATE [Concomitant]
     Indication: NAUSEA
  5. METOPROLOL [Concomitant]
     Active Substance: METOPROLOL
     Indication: HYPERTENSION
  6. ALEVE [Concomitant]
     Active Substance: NAPROXEN SODIUM
     Indication: ARTHRITIS
  7. GLEEVEC [Concomitant]
     Active Substance: IMATINIB MESYLATE
     Indication: LEUKAEMIA
  8. MAGNESIUM OXIDE. [Concomitant]
     Active Substance: MAGNESIUM OXIDE
     Indication: VITAMIN SUPPLEMENTATION
  9. ASPIRIN. [Concomitant]
     Active Substance: ASPIRIN
     Indication: CARDIAC DISORDER
  10. OXYCODONE [Concomitant]
     Active Substance: OXYCODONE
     Indication: ARTHRITIS

REACTIONS (2)
  - Pollakiuria [Not Recovered/Not Resolved]
  - Nocturia [Not Recovered/Not Resolved]

NARRATIVE: CASE EVENT DATE: 2013
